FAERS Safety Report 16938958 (Version 2)
Quarter: 2020Q2

REPORT INFORMATION
  Report Type: Report from Study
  Country: PT (occurrence: PT)
  Receive Date: 20191020
  Receipt Date: 20200518
  Transmission Date: 20200713
  Serious: Yes (Life-Threatening, Hospitalization, Other)
  Sender: FDA-Public Use
  Company Number: PHHO2019PT006919

PATIENT
  Age: 55 Year
  Sex: Female
  Weight: 56 kg

DRUGS (7)
  1. MINIGESTE [Concomitant]
     Active Substance: ETHINYL ESTRADIOL\GESTODENE
     Indication: CONTRACEPTION
     Dosage: UNK
     Route: 065
     Dates: start: 2000, end: 20190626
  2. AMIKACINE [Concomitant]
     Active Substance: AMIKACIN
     Indication: FEBRILE NEUTROPENIA
     Dosage: UNK
     Route: 065
     Dates: start: 20190624
  3. COMPARATOR CYTARABINE [Suspect]
     Active Substance: CYTARABINE
     Indication: ACUTE MYELOID LEUKAEMIA
     Dosage: 200 MG/M2, CONT
     Route: 042
     Dates: start: 20190419
  4. GRANISETRON [Concomitant]
     Active Substance: GRANISETRON
     Indication: THERAPEUTIC PROCEDURE
     Dosage: UNK
     Route: 065
     Dates: start: 20190419
  5. MIDOSTAURIN [Suspect]
     Active Substance: MIDOSTAURIN
     Indication: ACUTE MYELOID LEUKAEMIA
     Dosage: 25 MG
     Route: 048
     Dates: start: 20190426, end: 20190627
  6. COMPARATOR DAUNORUBICIN [Suspect]
     Active Substance: DAUNORUBICIN
     Indication: ACUTE MYELOID LEUKAEMIA
     Dosage: 60 MG/M2, CONT
     Route: 042
     Dates: start: 20190419
  7. ALPRAZOLAM. [Concomitant]
     Active Substance: ALPRAZOLAM
     Indication: ANXIETY
     Dosage: UNK
     Route: 065
     Dates: start: 2000, end: 201906

REACTIONS (2)
  - Septic shock [Recovered/Resolved]
  - Pelvic abscess [Recovered/Resolved with Sequelae]

NARRATIVE: CASE EVENT DATE: 20190626
